FAERS Safety Report 7329806-6 (Version None)
Quarter: 2011Q1

REPORT INFORMATION
  Report Type: 
  Country: None (occurrence: None)
  Receive Date: 20110303
  Receipt Date: 20110302
  Transmission Date: 20110831
  Serious: Yes (Life-Threatening)
  Sender: FDA-Public Use
  Company Number: US-B.I. PHARMACEUTICALS,INC./RIDGEFIELD-2011-BP-05883BP

PATIENT
  Age: 68 Year
  Sex: Female

DRUGS (13)
  1. KEPPRA [Concomitant]
     Dosage: 1500 MG
  2. PRADAXA [Suspect]
     Indication: ATRIAL FIBRILLATION
     Dosage: 300 MG
     Route: 048
     Dates: start: 20110201
  3. PRAVASTATIN SODIUM [Concomitant]
     Dosage: 40 MG
  4. COLACE [Concomitant]
  5. PROTONIX [Concomitant]
     Dosage: 40 MG
  6. SYNTHROID [Concomitant]
     Dosage: 125 NR
  7. METOPROLOL [Concomitant]
     Dosage: 25 MG
  8. ZYRTEC [Concomitant]
     Dosage: 10 MG
  9. ASA [Concomitant]
     Dosage: 81 MG
  10. DILTIAZEM [Concomitant]
     Dosage: 120 MG
  11. MECLIZINE [Concomitant]
  12. POTASSIUM CHLORIDE [Concomitant]
     Dosage: 250 MEQ
  13. REMERON [Concomitant]
     Dosage: 15 MG

REACTIONS (1)
  - CEREBROVASCULAR ACCIDENT [None]
